FAERS Safety Report 9885696 (Version 3)
Quarter: 2014Q1

REPORT INFORMATION
  Report Type: Spontaneous
  Country: IL (occurrence: IL)
  Receive Date: 20140210
  Receipt Date: 20140317
  Transmission Date: 20141002
  Serious: Yes (Other)
  Sender: FDA-Public Use
  Company Number: IL-PFIZER INC-2014033837

PATIENT
  Sex: Female

DRUGS (1)
  1. CHAMPIX [Suspect]
     Dosage: 1 MG, 2X/DAY

REACTIONS (3)
  - Hypertension [Not Recovered/Not Resolved]
  - Chest pain [Unknown]
  - Headache [Unknown]
